FAERS Safety Report 7825245-X (Version None)
Quarter: 2011Q4

REPORT INFORMATION
  Report Type: 
  Country: None (occurrence: None)
  Receive Date: 20111019
  Receipt Date: 20111011
  Transmission Date: 20120403
  Serious: Yes (Hospitalization)
  Sender: FDA-Public Use
  Company Number: US-GLAXOSMITHKLINE-A0905957A

PATIENT
  Age: 53 Year
  Sex: Female

DRUGS (1)
  1. AVANDIA [Suspect]
     Indication: DIABETES MELLITUS
     Dosage: 8MG PER DAY
     Route: 048
     Dates: start: 20020101, end: 20061001

REACTIONS (12)
  - STENT PLACEMENT [None]
  - SENSORY LOSS [None]
  - CORONARY ARTERIAL STENT INSERTION [None]
  - AMNESIA [None]
  - MYOCARDIAL INFARCTION [None]
  - PAIN [None]
  - CORONARY ANGIOPLASTY [None]
  - CATHETERISATION CARDIAC [None]
  - DYSPNOEA [None]
  - CORONARY ARTERY DISEASE [None]
  - FATIGUE [None]
  - CHEST PAIN [None]
